FAERS Safety Report 4963345-2 (Version None)
Quarter: 2006Q2

REPORT INFORMATION
  Report Type: 
  Country: None (occurrence: None)
  Receive Date: 20060404
  Receipt Date: 20060404
  Transmission Date: 20061013
  Serious: Yes (Hospitalization)
  Sender: FDA-Public Use
  Company Number: None

PATIENT
  Age: 85 Year
  Sex: Male
  Weight: 71.2147 kg

DRUGS (1)
  1. CHLORPROMAZINE [Suspect]
     Indication: SCHIZOPHRENIA
     Dosage: 100-200 MG PO QHS
     Route: 048
     Dates: start: 20051201, end: 20060303

REACTIONS (1)
  - HYPONATRAEMIA [None]
